FAERS Safety Report 4922773-1 (Version None)
Quarter: 2006Q1

REPORT INFORMATION
  Report Type: 
  Country: None (occurrence: None)
  Receive Date: 20060224
  Receipt Date: 20060222
  Transmission Date: 20060701
  Serious: Yes (Other)
  Sender: FDA-Public Use
  Company Number: CA-MERCK-0602CAN00126

PATIENT
  Age: 71 Year
  Sex: Male

DRUGS (3)
  1. FOSAMAX [Suspect]
     Route: 048
     Dates: start: 20000101, end: 20020101
  2. FOSAMAX [Suspect]
     Route: 048
     Dates: start: 20020101, end: 20030101
  3. FOSAMAX [Suspect]
     Route: 048
     Dates: start: 20030101

REACTIONS (3)
  - BONE DENSITY DECREASED [None]
  - PROSTATE CANCER [None]
  - URINE CALCIUM INCREASED [None]
